FAERS Safety Report 19468185 (Version 1)
Quarter: 2021Q2

REPORT INFORMATION
  Report Type: Spontaneous
  Country: US (occurrence: US)
  Receive Date: 20210628
  Receipt Date: 20210628
  Transmission Date: 20210717
  Serious: No
  Sender: FDA-Public Use
  Company Number: US-PFIZER INC-2021704499

PATIENT
  Age: 21 Year
  Sex: Female
  Weight: 52.16 kg

DRUGS (2)
  1. FLAGYL [Suspect]
     Active Substance: METRONIDAZOLE\METRONIDAZOLE HYDROCHLORIDE
     Indication: VAGINAL INFECTION
     Dosage: 500 MG, 2X/DAY
     Dates: end: 20210608
  2. REPHRESH PRO B [Concomitant]
     Dosage: UNK
     Dates: end: 20210608

REACTIONS (4)
  - Arthralgia [Unknown]
  - Epistaxis [Unknown]
  - Illness [Unknown]
  - Myalgia [Unknown]

NARRATIVE: CASE EVENT DATE: 20210604
